FAERS Safety Report 17224090 (Version 1)
Quarter: 2020Q1

REPORT INFORMATION
  Report Type: Spontaneous
  Country: AU (occurrence: AU)
  Receive Date: 20200102
  Receipt Date: 20200102
  Transmission Date: 20200409
  Serious: Yes (Other)
  Sender: FDA-Public Use
  Company Number: AU-PFIZER INC-2019555054

PATIENT
  Age: 68 Year
  Sex: Female

DRUGS (1)
  1. ATORVASTATIN CALCIUM. [Suspect]
     Active Substance: ATORVASTATIN CALCIUM
     Indication: HYPERLIPIDAEMIA
     Dosage: UNK

REACTIONS (5)
  - Immune-mediated myositis [Recovering/Resolving]
  - Muscular weakness [Unknown]
  - Mobility decreased [Unknown]
  - Hyporeflexia [Unknown]
  - Muscle atrophy [Unknown]
